FAERS Safety Report 21074245 (Version 1)
Quarter: 2022Q3

REPORT INFORMATION
  Report Type: Spontaneous
  Country: US (occurrence: US)
  Receive Date: 20220713
  Receipt Date: 20220713
  Transmission Date: 20221026
  Serious: No
  Sender: FDA-Public Use
  Company Number: US-AMGEN-USASP2022114055

PATIENT
  Age: 61 Year
  Sex: Female

DRUGS (2)
  1. REPATHA [Suspect]
     Active Substance: EVOLOCUMAB
     Indication: Hypercholesterolaemia
     Dosage: 140 MILLIGRAM, Q2WK
     Route: 065
     Dates: start: 20220624, end: 20220624
  2. ESTROGEL [Concomitant]
     Active Substance: ESTRADIOL
     Indication: Hysteroscopy
     Dosage: 2 PUMPS AT NIGHT BEFORE SHE GOES TO BED
     Dates: start: 2008

REACTIONS (8)
  - Abdominal distension [Recovering/Resolving]
  - Gastric dilatation [Recovered/Resolved]
  - Dyspepsia [Recovered/Resolved]
  - Agitation [Recovered/Resolved]
  - Musculoskeletal disorder [Recovered/Resolved]
  - Respiratory tract congestion [Recovering/Resolving]
  - Fatigue [Recovering/Resolving]
  - Musculoskeletal pain [Recovered/Resolved]

NARRATIVE: CASE EVENT DATE: 20220624
